FAERS Safety Report 20231821 (Version 2)
Quarter: 2022Q1

REPORT INFORMATION
  Report Type: Spontaneous
  Country: DK (occurrence: DK)
  Receive Date: 20211227
  Receipt Date: 20220113
  Transmission Date: 20220423
  Serious: Yes (Life-Threatening, Hospitalization, Disabling, Other)
  Sender: FDA-Public Use
  Company Number: None

PATIENT
  Age: 72 Year
  Sex: Male
  Weight: 97 kg

DRUGS (9)
  1. JARDIANCE [Suspect]
     Active Substance: EMPAGLIFLOZIN
     Indication: Type 2 diabetes mellitus
     Route: 048
     Dates: start: 20190213, end: 20211211
  2. ALLOPURINOL ^ORION^ [Concomitant]
     Indication: Gout
     Dates: start: 20140818
  3. OZEMPIC [Concomitant]
     Active Substance: SEMAGLUTIDE
     Indication: Type 2 diabetes mellitus
     Dates: start: 20200303
  4. LOSARTANKALIUM/HYDROCHLORTHIAZID ^KRKA^ [Concomitant]
     Indication: Hypertension
     Dates: start: 20130830
  5. ACETAMINOPHEN [Concomitant]
     Active Substance: ACETAMINOPHEN
     Indication: Pain
     Dates: start: 20200303
  6. METFORMIN HYDROCHLORIDE [Concomitant]
     Active Substance: METFORMIN HYDROCHLORIDE
     Indication: Type 2 diabetes mellitus
     Dates: start: 20190115
  7. AMLODIPINE BESYLATE [Concomitant]
     Active Substance: AMLODIPINE BESYLATE
     Indication: Hypertension
     Dates: start: 20171206
  8. HJERTEMAGNYL [Concomitant]
     Indication: Anticoagulant therapy
     Dates: start: 201712
  9. ROSUVASTATIN CALCIUM [Concomitant]
     Active Substance: ROSUVASTATIN CALCIUM
     Indication: Hypercholesterolaemia
     Dates: start: 20201002

REACTIONS (5)
  - Ketoacidosis [Unknown]
  - Scrotal swelling [Unknown]
  - Fournier^s gangrene [Recovered/Resolved with Sequelae]
  - Necrotising fasciitis [Recovered/Resolved with Sequelae]
  - Depressed level of consciousness [Unknown]

NARRATIVE: CASE EVENT DATE: 20211201
